FAERS Safety Report 18281166 (Version 3)
Quarter: 2021Q1

REPORT INFORMATION
  Report Type: Spontaneous
  Country: FR (occurrence: FR)
  Receive Date: 20200918
  Receipt Date: 20210112
  Transmission Date: 20210419
  Serious: Yes (Death, Life-Threatening, Hospitalization, Other)
  Sender: FDA-Public Use
  Company Number: FR-AUROBINDO-AUR-APL-2020-048163

PATIENT
  Age: 87 Year
  Sex: Female

DRUGS (11)
  1. ENOXAPARINE [Suspect]
     Active Substance: ENOXAPARIN
     Indication: COVID-19
  2. VORICONAZOLE POWDER FOR SOLUTION FOR INFUSION [Suspect]
     Active Substance: VORICONAZOLE
     Indication: ANTIBIOTIC THERAPY
     Dosage: 6 MILLIGRAM/KILOGRAM, TWO TIMES A DAY (12 MILLIGRAM/KILOGRAM, ONCE A DAY)
     Route: 042
     Dates: start: 2020
  3. PIPERACILLIN AND TAZOBACTAM [Suspect]
     Active Substance: PIPERACILLIN SODIUM\TAZOBACTAM SODIUM
     Indication: COVID-19
     Dosage: UNK
     Route: 065
     Dates: start: 2020
  4. ENOXAPARINE [Suspect]
     Active Substance: ENOXAPARIN
     Indication: THROMBOSIS PROPHYLAXIS
     Dosage: 6000 INTERNATIONAL UNIT (AXA)
     Route: 065
     Dates: start: 2020
  5. METHYLPREDNISOLONE. [Suspect]
     Active Substance: METHYLPREDNISOLONE
     Indication: COVID-19
     Dosage: 1 MILLIGRAM/KILOGRAM, ONCE A DAY
     Route: 065
     Dates: start: 2020
  6. VORICONAZOLE POWDER FOR SOLUTION FOR INFUSION [Suspect]
     Active Substance: VORICONAZOLE
     Indication: ASPERGILLUS INFECTION
     Dosage: 4 MILLIGRAM/KILOGRAM, TWO TIMES A DAY (8 MILLIGRAM/KILOGRAM, ONCE A DAY)
     Route: 042
     Dates: start: 2020
  7. PIPERACILLIN AND TAZOBACTAM [Suspect]
     Active Substance: PIPERACILLIN SODIUM\TAZOBACTAM SODIUM
     Indication: EVIDENCE BASED TREATMENT
  8. CEFTRIAXONE. [Suspect]
     Active Substance: CEFTRIAXONE
     Indication: COVID-19
     Dosage: 2000 MILLIGRAM, ONCE A DAY
     Route: 065
     Dates: start: 2020, end: 2020
  9. METHYLPREDNISOLONE. [Suspect]
     Active Substance: METHYLPREDNISOLONE
     Dosage: 1 MILLIGRAM/KILOGRAM, ONCE A DAY
     Route: 065
     Dates: start: 20200330, end: 20200414
  10. HYDROXYCHLOROQUINE [Suspect]
     Active Substance: HYDROXYCHLOROQUINE
     Indication: COVID-19
     Dosage: 200 MILLIGRAM, TWO TIMES A DAY
     Route: 065
  11. SPIRAMYCIN [Suspect]
     Active Substance: SPIRAMYCIN
     Indication: COVID-19
     Dosage: 1.5 MEGA?INTERNATIONAL UNIT, 3 TIMES A DAY
     Route: 065
     Dates: start: 2020, end: 2020

REACTIONS (5)
  - Off label use [Fatal]
  - Treatment failure [Unknown]
  - Aspergillus infection [Fatal]
  - Drug ineffective for unapproved indication [Fatal]
  - Respiratory failure [Fatal]

NARRATIVE: CASE EVENT DATE: 2020
